FAERS Safety Report 4368414-6 (Version None)
Quarter: 2004Q2

REPORT INFORMATION
  Report Type: 
  Country: None (occurrence: None)
  Receive Date: 20040602
  Receipt Date: 20040322
  Transmission Date: 20050107
  Serious: Yes (Hospitalization)
  Sender: FDA-Public Use
  Company Number: DE-GLAXOSMITHKLINE-D0043444A

PATIENT
  Age: 15 Year
  Sex: Male

DRUGS (4)
  1. LAMICTAL [Suspect]
     Indication: EPILEPSY
     Dosage: 75MG PER DAY
     Route: 048
  2. ANTIBIOTIC [Suspect]
     Route: 065
  3. LUMINAL [Concomitant]
     Route: 065
  4. ORFIRIL [Concomitant]
     Route: 065

REACTIONS (5)
  - BRAIN NEOPLASM [None]
  - COMA [None]
  - DRUG INTERACTION [None]
  - FALL [None]
  - HEMIPARESIS [None]
